FAERS Safety Report 19241785 (Version 1)
Quarter: 2021Q2

REPORT INFORMATION
  Report Type: Spontaneous
  Country: US (occurrence: US)
  Receive Date: 20210511
  Receipt Date: 20210511
  Transmission Date: 20210717
  Serious: No
  Sender: FDA-Public Use
  Company Number: US-TEVA-2021-US-1903136

PATIENT
  Age: 63 Year
  Sex: Female

DRUGS (1)
  1. AUSTEDO [Suspect]
     Active Substance: DEUTETRABENAZINE
     Indication: TARDIVE DYSKINESIA
     Dosage: 2 X AUSTEDO 6 MG TABLET TWICE A DAY
     Route: 065
     Dates: start: 202102

REACTIONS (3)
  - Drug ineffective [Unknown]
  - Tremor [Unknown]
  - Bruxism [Unknown]

NARRATIVE: CASE EVENT DATE: 202102
